FAERS Safety Report 7325282-8 (Version None)
Quarter: 2011Q1

REPORT INFORMATION
  Report Type: 
  Country: None (occurrence: None)
  Receive Date: 20110302
  Receipt Date: 20110221
  Transmission Date: 20110831
  Serious: Yes (Hospitalization)
  Sender: FDA-Public Use
  Company Number: IE-US-EMD SERONO, INC.-7009394

PATIENT
  Sex: Female

DRUGS (2)
  1. REBIF [Suspect]
     Dates: start: 20100628
  2. REBIF [Suspect]
     Indication: RELAPSING-REMITTING MULTIPLE SCLEROSIS
     Route: 058
     Dates: start: 20010101

REACTIONS (9)
  - OROPHARYNGEAL PAIN [None]
  - INJECTION SITE ERYTHEMA [None]
  - INTRACRANIAL HYPOTENSION [None]
  - MALAISE [None]
  - HEADACHE [None]
  - POST LUMBAR PUNCTURE SYNDROME [None]
  - INJECTION SITE REACTION [None]
  - INFLUENZA LIKE ILLNESS [None]
  - INDURATION [None]
